FAERS Safety Report 9518712 (Version 1)
Quarter: 2013Q3

REPORT INFORMATION
  Report Type: Report from Study
  Country: DE (occurrence: DE)
  Receive Date: 20130912
  Receipt Date: 20130912
  Transmission Date: 20140515
  Serious: Yes (Hospitalization)
  Sender: FDA-Public Use
  Company Number: DE-ASTELLAS-2013EU007806

PATIENT
  Age: 63 Year
  Sex: Female

DRUGS (5)
  1. TACROLIMUS SYSTEMIC [Suspect]
     Indication: RENAL TRANSPLANT
     Dosage: 15 UNK, UID/QD
     Route: 048
     Dates: start: 20120929
  2. MYCOPHENOLATE MOFETIL [Suspect]
     Indication: RENAL TRANSPLANT
     Dosage: 1000 UNK, BID
     Route: 048
     Dates: start: 20120929
  3. BASILIXIMAB [Suspect]
     Indication: RENAL TRANSPLANT
     Dosage: 20 UNK, UID/QD
     Route: 048
     Dates: start: 20120929
  4. PREDNISOLONE [Suspect]
     Indication: RENAL TRANSPLANT
     Dosage: 5 UNK, UID/QD
     Route: 048
     Dates: start: 20120929
  5. PROGRAF [Concomitant]
     Dosage: UNK
     Route: 065

REACTIONS (5)
  - Pulmonary embolism [Recovered/Resolved]
  - Resuscitation [Recovered/Resolved]
  - Renal failure acute [Recovered/Resolved]
  - Ovarian cancer [Recovered/Resolved]
  - Metastatic neoplasm [Recovered/Resolved]
